FAERS Safety Report 10247184 (Version 1)
Quarter: 2014Q2

REPORT INFORMATION
  Report Type: Spontaneous
  Country: GB (occurrence: None)
  Receive Date: 20140617
  Receipt Date: 20140617
  Transmission Date: 20141212
  Serious: Yes (Life-Threatening)
  Sender: FDA-Public Use
  Company Number: AUR-APL-2014-06337

PATIENT
  Age: 54 Year
  Sex: Female

DRUGS (2)
  1. MIRTAZAPINE 15MG (MIRTAZAPINE) UNKNOWN, 15MG [Suspect]
     Indication: DEPRESSION
     Route: 048
     Dates: start: 20140428, end: 20140512
  2. CITALOPRAM (CITALOPRAM) [Concomitant]

REACTIONS (3)
  - Myoclonus [None]
  - Serotonin syndrome [None]
  - Speech disorder [None]
